FAERS Safety Report 7559541-0 (Version None)
Quarter: 2011Q2

REPORT INFORMATION
  Report Type: 
  Country: None (occurrence: None)
  Receive Date: 20110621
  Receipt Date: 20110616
  Transmission Date: 20111010
  Serious: Yes (Life-Threatening)
  Sender: FDA-Public Use
  Company Number: DE-SANOFI-AVENTIS-2010SA006334

PATIENT
  Age: 58 Year
  Sex: Female

DRUGS (15)
  1. FLUOROURACIL [Suspect]
     Route: 041
  2. FLUOROURACIL [Suspect]
     Route: 040
     Dates: start: 20081105, end: 20081105
  3. LEUCOVORIN CALCIUM [Suspect]
     Route: 041
  4. METOPROLOL SUCCINATE [Concomitant]
     Dates: start: 20080901
  5. OXALIPLATIN [Suspect]
     Route: 041
  6. FLUOROURACIL [Suspect]
     Route: 040
  7. FLUOROURACIL [Suspect]
     Route: 040
  8. RAMIPRIL [Concomitant]
     Dates: start: 20080901
  9. OXALIPLATIN [Suspect]
     Route: 041
  10. OXALIPLATIN [Suspect]
     Route: 041
     Dates: start: 20081105, end: 20081105
  11. BEVACIZUMAB [Suspect]
     Route: 041
  12. BEVACIZUMAB [Suspect]
     Route: 041
     Dates: start: 20081103, end: 20081103
  13. FLUOROURACIL [Suspect]
     Route: 041
     Dates: start: 20081105, end: 20081105
  14. LEUCOVORIN CALCIUM [Suspect]
     Route: 065
  15. FLUOROURACIL [Suspect]
     Route: 041

REACTIONS (1)
  - HYPERTENSIVE EMERGENCY [None]
